FAERS Safety Report 9345852 (Version 4)
Quarter: 2013Q3

REPORT INFORMATION
  Report Type: Report from Study
  Country: JP (occurrence: JP)
  Receive Date: 20130613
  Receipt Date: 20130718
  Transmission Date: 20140515
  Serious: Yes (Death)
  Sender: FDA-Public Use
  Company Number: JP-ABBOTT-13P-087-1103564-00

PATIENT
  Age: 61 Year
  Sex: Male
  Weight: 49.5 kg

DRUGS (1)
  1. HUMIRA [Suspect]
     Indication: BEHCET^S SYNDROME
     Route: 058
     Dates: start: 20130604, end: 20130604

REACTIONS (2)
  - Behcet^s syndrome [Fatal]
  - Shock haemorrhagic [Fatal]
